FAERS Safety Report 16877886 (Version 1)
Quarter: 2019Q4

REPORT INFORMATION
  Report Type: Spontaneous
  Country: US (occurrence: US)
  Receive Date: 20191002
  Receipt Date: 20191002
  Transmission Date: 20200122
  Serious: Yes (Hospitalization)
  Sender: FDA-Public Use
  Company Number: US-FRESENIUS MEDICAL CARE RENAL THERAPIES GROUP-FMC-1909-001253

PATIENT
  Sex: Male
  Weight: 77.3 kg

DRUGS (1)
  1. DELFLEX [Suspect]
     Active Substance: CALCIUM CHLORIDE\DEXTROSE\MAGNESIUM CHLORIDE\SODIUM CHLORIDE\SODIUM LACTATE
     Indication: END STAGE RENAL DISEASE
     Dosage: 2.1 LITER X 6 EXCHANGES, DWELL TIME (DT) 1 HOUR 30 MINUTES; LAST FILL VOLUME 2.1 L DRAIN TO CYCLER.
     Route: 033

REACTIONS (1)
  - Peritonitis [Recovering/Resolving]
